FAERS Safety Report 16689850 (Version 5)
Quarter: 2021Q4

REPORT INFORMATION
  Report Type: Spontaneous
  Country: IT (occurrence: IT)
  Receive Date: 20190809
  Receipt Date: 20211103
  Transmission Date: 20220303
  Serious: Yes (Other)
  Sender: FDA-Public Use
  Company Number: IT-TAKEDA-2019TUS047066

PATIENT
  Age: 46 Year
  Sex: Female

DRUGS (6)
  1. PONATINIB [Interacting]
     Active Substance: PONATINIB
     Indication: Philadelphia positive acute lymphocytic leukaemia
     Dosage: 45 MILLIGRAM, QD
     Route: 065
     Dates: start: 201612
  2. PONATINIB [Interacting]
     Active Substance: PONATINIB
     Dosage: 30 MILLIGRAM, QD
     Route: 065
  3. PONATINIB [Interacting]
     Active Substance: PONATINIB
     Dosage: 15 MILLIGRAM, QD
     Route: 065
     Dates: start: 201612
  4. PONATINIB [Interacting]
     Active Substance: PONATINIB
     Dosage: 60 MILLIGRAM, QD
     Route: 048
     Dates: start: 201612
  5. VORICONAZOLE [Interacting]
     Active Substance: VORICONAZOLE
     Indication: Bronchopulmonary aspergillosis
     Dosage: 100 MILLIGRAM
     Route: 065
     Dates: start: 201612
  6. THYROXINE [Concomitant]
     Active Substance: LEVOTHYROXINE
     Indication: Hormone replacement therapy
     Dosage: UNK
     Route: 065

REACTIONS (7)
  - Hallucination [Unknown]
  - Psychotic disorder [Unknown]
  - Drug interaction [Unknown]
  - Insomnia [Unknown]
  - Neuropathy peripheral [Unknown]
  - Atrial fibrillation [Recovered/Resolved]
  - Drug level increased [Unknown]

NARRATIVE: CASE EVENT DATE: 20171201
